FAERS Safety Report 8484010-3 (Version None)
Quarter: 2012Q2

REPORT INFORMATION
  Report Type: 
  Country: None (occurrence: None)
  Receive Date: 20120627
  Receipt Date: 20120627
  Transmission Date: 20120825
  Serious: Yes (Other)
  Sender: FDA-Public Use
  Company Number: None

PATIENT
  Sex: Female
  Weight: 55.3388 kg

DRUGS (1)
  1. SIMVASTATIN [Suspect]
     Indication: BLOOD CHOLESTEROL INCREASED
     Dosage: 20 MG, 1 AT BEDTIME
     Dates: start: 20120518, end: 20120529

REACTIONS (12)
  - OEDEMA MOUTH [None]
  - FACE OEDEMA [None]
  - RASH [None]
  - PYREXIA [None]
  - DYSPHONIA [None]
  - SLEEP DISORDER [None]
  - CONTUSION [None]
  - CHEST DISCOMFORT [None]
  - LIP SWELLING [None]
  - PRURITUS [None]
  - INFECTION [None]
  - PAIN [None]
